FAERS Safety Report 19590271 (Version 3)
Quarter: 2021Q3

REPORT INFORMATION
  Report Type: Report from Study
  Country: JP (occurrence: JP)
  Receive Date: 20210721
  Receipt Date: 20210730
  Transmission Date: 20211014
  Serious: Yes (Hospitalization, Other)
  Sender: FDA-Public Use
  Company Number: JP-CELLTRION INC.-2021JP009763

PATIENT

DRUGS (6)
  1. ELPLAT [Suspect]
     Active Substance: OXALIPLATIN
     Indication: GASTRIC CANCER
     Dosage: 218 MILLIGRAM, QD
     Route: 041
     Dates: start: 20210618, end: 20210618
  2. ELPLAT [Suspect]
     Active Substance: OXALIPLATIN
     Dosage: 160 MILLIGRAM, QD
     Route: 041
     Dates: start: 20210713, end: 20210713
  3. TRASTUZUMAB BS FOR I.V. INFUSION [NK] [Suspect]
     Active Substance: TRASTUZUMAB
     Indication: GASTRIC CANCER
     Dosage: 502 MILLIGRAM, QD (8MG/KG)
     Route: 041
     Dates: start: 20210618, end: 20210618
  4. XELODA [Suspect]
     Active Substance: CAPECITABINE
     Indication: GASTRIC CANCER
     Dosage: 1800 MILLIGRAM
     Route: 048
     Dates: start: 20210618, end: 20210625
  5. TRASTUZUMAB BS FOR I.V. INFUSION [NK] [Suspect]
     Active Substance: TRASTUZUMAB
     Dosage: 350 MILLIGRAM (6MG/KG)
     Route: 041
     Dates: start: 20210713, end: 20210713
  6. XELODA [Suspect]
     Active Substance: CAPECITABINE
     Dosage: 3000 MILLIGRAM, QD
     Route: 048
     Dates: start: 20210713

REACTIONS (9)
  - Dyschezia [Unknown]
  - Haemoglobin decreased [Unknown]
  - White blood cell count decreased [Unknown]
  - Neutropenia [Recovered/Resolved]
  - Decreased appetite [Recovered/Resolved]
  - Overdose [Unknown]
  - Nausea [Unknown]
  - Abdominal distension [Unknown]
  - Vomiting [Unknown]

NARRATIVE: CASE EVENT DATE: 20210619
